FAERS Safety Report 21241538 (Version 1)
Quarter: 2022Q3

REPORT INFORMATION
  Report Type: Spontaneous
  Country: CA (occurrence: CA)
  Receive Date: 20220823
  Receipt Date: 20220823
  Transmission Date: 20221026
  Serious: Yes (Death, Other)
  Sender: FDA-Public Use
  Company Number: CA-TEVA-2022-CA-2065817

PATIENT
  Age: 24 Year
  Sex: Male

DRUGS (5)
  1. OLANZAPINE [Suspect]
     Active Substance: OLANZAPINE
     Indication: Psychotic symptom
     Dosage: 1 DOSAGE FORMS DAILY;  THERAPY DURATION : 6.0 DAYS
     Route: 065
  2. QUETIAPINE FUMARATE [Suspect]
     Active Substance: QUETIAPINE FUMARATE
     Indication: Insomnia
     Route: 048
  3. ABILIFY MAINTENA [Suspect]
     Active Substance: ARIPIPRAZOLE
     Indication: Psychotic symptom
     Dosage: 400 MILLIGRAM DAILY;
     Route: 030
  4. ZUCLOPENTHIXOL ACETATE [Suspect]
     Active Substance: ZUCLOPENTHIXOL ACETATE
     Indication: Mental disorder
     Route: 065
  5. LORAZEPAM [Concomitant]
     Active Substance: LORAZEPAM
     Indication: Product used for unknown indication
     Route: 065

REACTIONS (15)
  - Accidental death [Fatal]
  - Acute pulmonary oedema [Fatal]
  - Anxiolytic therapy [Fatal]
  - Arrhythmia [Fatal]
  - Cardiac failure [Fatal]
  - Drug therapy enhancement [Fatal]
  - Iatrogenic injury [Fatal]
  - Multiple drug therapy [Fatal]
  - Paradoxical drug reaction [Fatal]
  - Ventricular arrhythmia [Fatal]
  - Inappropriate schedule of product administration [Fatal]
  - Off label use [Fatal]
  - Prescribed overdose [Fatal]
  - Product dose omission issue [Fatal]
  - Therapeutic product effect incomplete [Fatal]
